FAERS Safety Report 22054894 (Version 1)
Quarter: 2023Q1

REPORT INFORMATION
  Report Type: Spontaneous
  Country: US (occurrence: US)
  Receive Date: 20230302
  Receipt Date: 20230302
  Transmission Date: 20230418
  Serious: Yes (Other)
  Sender: FDA-Public Use
  Company Number: US-009507513-2302USA007047

PATIENT
  Age: 57 Year
  Sex: Female

DRUGS (2)
  1. BRIDION [Suspect]
     Active Substance: SUGAMMADEX
     Indication: Neuromuscular blockade reversal
     Dosage: FIRST TIME
  2. BRIDION [Suspect]
     Active Substance: SUGAMMADEX
     Indication: Skin test
     Dosage: DILUTED CONCENTRATION OF 0.1MG/ML

REACTIONS (3)
  - Anaphylactic reaction [Unknown]
  - Anaphylactic reaction [Unknown]
  - Product use in unapproved indication [Unknown]
